FAERS Safety Report 8150964-8 (Version None)
Quarter: 2012Q1

REPORT INFORMATION
  Report Type: 
  Country: None (occurrence: None)
  Receive Date: 20120220
  Receipt Date: 20120209
  Transmission Date: 20120608
  Serious: Yes (Life-Threatening, Hospitalization)
  Sender: FDA-Public Use
  Company Number: AT-MILLENNIUM PHARMACEUTICALS, INC.-2012-00985

PATIENT

DRUGS (3)
  1. PREDNISONE [Concomitant]
  2. MELPHALAN HYDROCHLORIDE [Concomitant]
  3. VELCADE [Suspect]
     Indication: MULTIPLE MYELOMA
     Dosage: UNK
     Route: 065

REACTIONS (1)
  - HYPONATRAEMIA [None]
